FAERS Safety Report 9506595 (Version 1)
Quarter: 2013Q3

REPORT INFORMATION
  Report Type: Spontaneous
  Country: US (occurrence: US)
  Receive Date: 20130907
  Receipt Date: 20130907
  Transmission Date: 20140515
  Serious: No
  Sender: FDA-Public Use
  Company Number: US-B.I. PHARMACEUTICALS,INC./RIDGEFIELD-2013-BI-26559BP

PATIENT
  Age: 58 Year
  Sex: Male
  Weight: 100 kg

DRUGS (5)
  1. TRADJENTA [Suspect]
     Indication: TYPE 2 DIABETES MELLITUS
     Dosage: 5 MG
     Route: 048
     Dates: start: 20130813, end: 20130816
  2. METOPROLOL [Concomitant]
     Indication: HEART RATE INCREASED
     Dosage: 25 MG
     Route: 048
     Dates: start: 201304
  3. METOPROLOL [Concomitant]
     Indication: HYPERTENSION
  4. METFORMIN [Concomitant]
     Indication: DIABETES MELLITUS
     Dosage: 1000 MG
     Route: 048
     Dates: start: 201304
  5. SIMVASTATIN [Concomitant]
     Indication: BLOOD CHOLESTEROL INCREASED
     Dosage: 20 MG
     Route: 048
     Dates: start: 201304

REACTIONS (5)
  - Back pain [Recovered/Resolved]
  - Diarrhoea [Recovered/Resolved]
  - Urinary retention [Recovered/Resolved]
  - Abdominal discomfort [Recovered/Resolved]
  - Myalgia [Recovered/Resolved]
